FAERS Safety Report 9812522 (Version 2)
Quarter: 2014Q1

REPORT INFORMATION
  Report Type: Report from Study
  Country: MX (occurrence: MX)
  Receive Date: 20140113
  Receipt Date: 20140113
  Transmission Date: 20141002
  Serious: Yes (Disabling)
  Sender: FDA-Public Use
  Company Number: MX-ORION CORPORATION ORION PHARMA-ENTC2012-0430

PATIENT
  Age: 84 Year
  Sex: Female

DRUGS (7)
  1. STALEVO [Suspect]
     Indication: PARKINSON^S DISEASE
     Dosage: STRENGTH: 150/37.5/200 MG
     Route: 048
     Dates: start: 20081209, end: 200812
  2. STALEVO [Suspect]
     Dosage: STRENGTH: 100/25/200 MG
     Route: 048
     Dates: start: 200812
  3. EXFORGE [Suspect]
     Indication: HYPERTENSION
     Dosage: STRENGTH: 160/10 MG
     Route: 048
  4. EXFORGE [Suspect]
     Dosage: STRENGTH: 160/10 MG
     Route: 048
  5. CLOPIDOGREL [Concomitant]
     Indication: CARDIAC PACEMAKER INSERTION
     Route: 065
     Dates: start: 200701
  6. PRAMIPEXOLE [Concomitant]
     Route: 065
     Dates: start: 2010
  7. SERTRALINE [Concomitant]
     Route: 065
     Dates: start: 2011

REACTIONS (4)
  - Spinal disorder [Not Recovered/Not Resolved]
  - Spinal pain [Not Recovered/Not Resolved]
  - Abasia [Not Recovered/Not Resolved]
  - Arthralgia [Not Recovered/Not Resolved]
